FAERS Safety Report 6925584-0 (Version None)
Quarter: 2010Q3

REPORT INFORMATION
  Report Type: 
  Country: None (occurrence: None)
  Receive Date: 20100816
  Receipt Date: 20100812
  Transmission Date: 20110219
  Serious: Yes (Hospitalization)
  Sender: FDA-Public Use
  Company Number: FR-MERCK-1008FRA00033

PATIENT
  Age: 65 Year
  Sex: Male

DRUGS (7)
  1. VYTORIN [Suspect]
     Indication: HYPERCHOLESTEROLAEMIA
     Route: 048
     Dates: start: 20050101, end: 20100602
  2. FUROSEMIDE [Suspect]
     Route: 048
  3. PERINDOPRIL ARGININE [Suspect]
     Route: 048
     Dates: end: 20100603
  4. INDAPAMIDE AND PERINDOPRIL ARGININE [Suspect]
     Route: 048
     Dates: end: 20100603
  5. NOVOMIX [Concomitant]
     Route: 058
  6. RABEPRAZOLE SODIUM [Concomitant]
     Route: 048
  7. TEMERIT [Concomitant]
     Route: 048

REACTIONS (2)
  - RENAL FAILURE [None]
  - RHABDOMYOLYSIS [None]
